FAERS Safety Report 8862005 (Version 2)
Quarter: 2013Q2

REPORT INFORMATION
  Report Type: Spontaneous
  Country: US (occurrence: US)
  Receive Date: 20121025
  Receipt Date: 20130425
  Transmission Date: 20140414
  Serious: No
  Sender: FDA-Public Use
  Company Number: US-009507513-1210USA006916

PATIENT
  Age: 58 Year
  Sex: Female
  Weight: 81.63 kg

DRUGS (6)
  1. PEGINTRON [Suspect]
     Indication: HEPATITIS C
     Dosage: 180 MCG DAILY
     Route: 058
     Dates: start: 20120807, end: 20130124
  2. REBETOL [Suspect]
     Route: 048
  3. THYROID [Concomitant]
  4. LEVEL [Concomitant]
  5. LISINOPRIL [Concomitant]
  6. ATIVAN [Concomitant]

REACTIONS (3)
  - Palpitations [Recovered/Resolved]
  - Dyspnoea [Recovered/Resolved]
  - Anxiety [Recovered/Resolved]
